FAERS Safety Report 7377282-X (Version None)
Quarter: 2011Q1

REPORT INFORMATION
  Report Type: 
  Country: None (occurrence: None)
  Receive Date: 20110328
  Receipt Date: 20110316
  Transmission Date: 20110831
  Serious: Yes (Hospitalization, Other)
  Sender: FDA-Public Use
  Company Number: US-JNJFOC-20110307496

PATIENT
  Sex: Female

DRUGS (3)
  1. DURAGESIC-50 [Suspect]
     Indication: BACK PAIN
     Route: 062
  2. FENTANYL-100 [Suspect]
     Indication: BACK PAIN
     Route: 062
  3. DURAGESIC-50 [Suspect]
     Route: 062

REACTIONS (7)
  - FIBROMYALGIA [None]
  - PNEUMONIA [None]
  - DRUG INEFFECTIVE [None]
  - SYSTEMIC LUPUS ERYTHEMATOSUS [None]
  - PULMONARY THROMBOSIS [None]
  - PLEURISY [None]
  - DEAFNESS [None]
